FAERS Safety Report 6885354-9 (Version None)
Quarter: 2010Q3

REPORT INFORMATION
  Report Type: 
  Country: None (occurrence: None)
  Receive Date: 20100729
  Receipt Date: 20080410
  Transmission Date: 20110219
  Serious: Yes (Other)
  Sender: FDA-Public Use
  Company Number: US-PFIZER INC-2008002865

PATIENT

DRUGS (3)
  1. CELEBREX [Suspect]
  2. NAPROXEN [Suspect]
  3. ALEVE (CAPLET) [Suspect]

REACTIONS (1)
  - GASTROINTESTINAL HAEMORRHAGE [None]
